FAERS Safety Report 4880419-5 (Version None)
Quarter: 2006Q1

REPORT INFORMATION
  Report Type: 
  Country: None (occurrence: None)
  Receive Date: 20060113
  Receipt Date: 20060105
  Transmission Date: 20060701
  Serious: Yes (Death)
  Sender: FDA-Public Use
  Company Number: DE-ABBOTT-06P-062-0321337-00

PATIENT
  Sex: Female

DRUGS (11)
  1. ERGENYL CHRONO TABLETS [Suspect]
     Indication: DEPRESSION
     Route: 048
     Dates: start: 20050826
  2. ERGENYL CHRONO TABLETS [Suspect]
     Indication: CONFUSIONAL STATE
  3. OLANZAPINE [Suspect]
     Indication: DEPRESSION
     Route: 048
     Dates: start: 20050826
  4. OLANZAPINE [Suspect]
     Indication: CONFUSIONAL STATE
  5. MIRTAZAPINE [Suspect]
     Indication: DEPRESSION
     Route: 048
     Dates: start: 20050826
  6. MIRTAZAPINE [Suspect]
     Indication: CONFUSIONAL STATE
  7. LORAZEPAM [Concomitant]
     Indication: DRUG USE FOR UNKNOWN INDICATION
     Route: 048
  8. FENTANYL [Concomitant]
     Indication: DRUG USE FOR UNKNOWN INDICATION
     Dosage: 50 MCG/H
     Route: 003
  9. ASPIRIN [Concomitant]
     Indication: DRUG USE FOR UNKNOWN INDICATION
     Route: 048
  10. RAMIPRIL [Concomitant]
     Indication: DRUG USE FOR UNKNOWN INDICATION
     Route: 048
  11. TORSEMIDE [Concomitant]
     Indication: DRUG USE FOR UNKNOWN INDICATION
     Route: 048

REACTIONS (1)
  - CARDIAC ARREST [None]
